FAERS Safety Report 4969105-0 (Version None)
Quarter: 2006Q2

REPORT INFORMATION
  Report Type: 
  Country: None (occurrence: None)
  Receive Date: 20060411
  Receipt Date: 20050829
  Transmission Date: 20061013
  Serious: Yes (Hospitalization, Other)
  Sender: FDA-Public Use
  Company Number: US-MERCK-0508USA04718

PATIENT
  Age: 41 Year
  Sex: Male
  Weight: 98 kg

DRUGS (2)
  1. VIOXX [Suspect]
     Route: 048
     Dates: start: 19991105, end: 20011109
  2. XANAX [Concomitant]
     Route: 065
     Dates: start: 20000101, end: 20040101

REACTIONS (2)
  - ANXIETY [None]
  - MYOCARDIAL INFARCTION [None]
